FAERS Safety Report 10658401 (Version 1)
Quarter: 2014Q4

REPORT INFORMATION
  Report Type: Spontaneous
  Country: AU (occurrence: AU)
  Receive Date: 20141217
  Receipt Date: 20141217
  Transmission Date: 20150529
  Serious: Yes (Hospitalization, Other)
  Sender: FDA-Public Use
  Company Number: AU-JNJFOC-20141207949

PATIENT

DRUGS (2)
  1. REMICADE [Suspect]
     Active Substance: INFLIXIMAB
     Indication: COLITIS ULCERATIVE
     Dosage: 5 MG/KG DOSE AT WEEK 0,2 AND 6 FOLLOWED BY 8-WEEKLY MAINTAINENCE
     Route: 042
     Dates: start: 20000101, end: 20120401
  2. REMICADE [Suspect]
     Active Substance: INFLIXIMAB
     Indication: CROHN^S DISEASE
     Dosage: 5 MG/KG DOSE AT WEEK 0,2 AND 6 FOLLOWED BY 8-WEEKLY MAINTAINENCE
     Route: 042
     Dates: start: 20000101, end: 20120401

REACTIONS (3)
  - Infection [Unknown]
  - Hospitalisation [Unknown]
  - Intestinal resection [Unknown]
